FAERS Safety Report 10669677 (Version 2)
Quarter: 2014Q4

REPORT INFORMATION
  Report Type: Spontaneous
  Country: US (occurrence: US)
  Receive Date: 20141222
  Receipt Date: 20141222
  Transmission Date: 20150529
  Serious: No
  Sender: FDA-Public Use
  Company Number: US-GLAXOSMITHKLINE-A1060836A

PATIENT

DRUGS (9)
  1. AVODART [Suspect]
     Active Substance: DUTASTERIDE
     Indication: PROSTATOMEGALY
     Route: 048
  2. KEPPRA XR [Concomitant]
     Active Substance: LEVETIRACETAM
  3. DONEPEZIL [Concomitant]
     Active Substance: DONEPEZIL
  4. VIMPAT [Concomitant]
     Active Substance: LACOSAMIDE
  5. RAPAFLO [Concomitant]
     Active Substance: SILODOSIN
  6. BABY ASPIRIN [Concomitant]
     Active Substance: ASPIRIN
  7. VITAMIN B COMPLEX [Concomitant]
     Active Substance: CYANOCOBALAMIN\DEXPANTHENOL\NIACINAMIDE\PYRIDOXINE HYDROCHLORIDE\RIBOFLAVIN 5^-PHOSPHATE SODIUM\THIAMINE HYDROCHLORIDE\VITAMIN B COMPLEX
  8. VENLAFAXINE [Concomitant]
     Active Substance: VENLAFAXINE HYDROCHLORIDE
  9. COCONUT OIL [Concomitant]
     Active Substance: COCONUT OIL

REACTIONS (3)
  - Drug ineffective [Unknown]
  - Pollakiuria [Not Recovered/Not Resolved]
  - Product quality issue [Unknown]

NARRATIVE: CASE EVENT DATE: 201401
